FAERS Safety Report 11132710 (Version 1)
Quarter: 2015Q2

REPORT INFORMATION
  Report Type: Spontaneous
  Country: US (occurrence: US)
  Receive Date: 20150522
  Receipt Date: 20150522
  Transmission Date: 20150821
  Serious: No
  Sender: FDA-Public Use
  Company Number: US-GLAXOSMITHKLINE-US2015068352

PATIENT
  Age: 48 Year
  Sex: Female

DRUGS (1)
  1. WALGREEN NICOTINE [Suspect]
     Active Substance: NICOTINE
     Indication: SMOKING CESSATION THERAPY
     Dosage: 21 MG, UNK
     Dates: start: 20150505, end: 20150517

REACTIONS (4)
  - Application site pruritus [Recovered/Resolved]
  - Application site swelling [Recovered/Resolved]
  - Application site reaction [Not Recovered/Not Resolved]
  - Application site bruise [Not Recovered/Not Resolved]

NARRATIVE: CASE EVENT DATE: 20150505
